FAERS Safety Report 6390127-X (Version None)
Quarter: 2009Q4

REPORT INFORMATION
  Report Type: 
  Country: None (occurrence: None)
  Receive Date: 20091003
  Receipt Date: 20090923
  Transmission Date: 20100525
  Serious: Yes (Other)
  Sender: FDA-Public Use
  Company Number: 2007US002552

PATIENT
  Age: 64 Year
  Sex: Male
  Weight: 111.4 kg

DRUGS (4)
  1. PROTOPIC [Suspect]
     Indication: DERMATITIS
     Dosage: 0.1 %, BID, TOPICAL
     Route: 061
     Dates: start: 20040401, end: 20060501
  2. LOVASTAT (LOVASTATIN) [Concomitant]
  3. ASPIRIN [Concomitant]
  4. ATENOLOL [Concomitant]

REACTIONS (11)
  - ABDOMINAL PAIN [None]
  - ABDOMINAL RIGIDITY [None]
  - ACQUIRED OESOPHAGEAL WEB [None]
  - DIARRHOEA [None]
  - DYSGEUSIA [None]
  - DYSPNOEA [None]
  - GASTRITIS [None]
  - HIATUS HERNIA [None]
  - NON-HODGKIN'S LYMPHOMA [None]
  - PALLOR [None]
  - WEIGHT DECREASED [None]
